FAERS Safety Report 24714193 (Version 1)
Quarter: 2024Q4

REPORT INFORMATION
  Report Type: Spontaneous
  Country: US (occurrence: US)
  Receive Date: 20241209
  Receipt Date: 20241209
  Transmission Date: 20250114
  Serious: Yes (Other)
  Sender: REGENERON
  Company Number: US-REGENERON PHARMACEUTICALS, INC.-2024-157053

PATIENT

DRUGS (2)
  1. EYLEA [Suspect]
     Active Substance: AFLIBERCEPT
     Indication: Product used for unknown indication
     Dosage: FORMULATION: UNKNOWN
  2. SYFOVRE [Concomitant]
     Active Substance: PEGCETACOPLAN
     Indication: Product used for unknown indication

REACTIONS (1)
  - Eye inflammation [Unknown]
